FAERS Safety Report 7228403-0 (Version None)
Quarter: 2011Q1

REPORT INFORMATION
  Report Type: 
  Country: None (occurrence: None)
  Receive Date: 20110114
  Receipt Date: 20110107
  Transmission Date: 20110831
  Serious: Yes (Death, Hospitalization)
  Sender: FDA-Public Use
  Company Number: US-AMGEN-US384088

PATIENT

DRUGS (1)
  1. NPLATE [Suspect]
     Indication: IDIOPATHIC THROMBOCYTOPENIC PURPURA
     Dosage: 150 A?G, UNK
     Dates: start: 20091229, end: 20100105

REACTIONS (3)
  - CEREBROVASCULAR ACCIDENT [None]
  - SUBDURAL HAEMATOMA [None]
  - COMA [None]
